FAERS Safety Report 10031398 (Version 2)
Quarter: 2014Q2

REPORT INFORMATION
  Report Type: Spontaneous
  Country: JP (occurrence: JP)
  Receive Date: 20140324
  Receipt Date: 20140407
  Transmission Date: 20141212
  Serious: Yes (Death)
  Sender: FDA-Public Use
  Company Number: JP-BAYER-2014-041994

PATIENT
  Age: 75 Year
  Sex: Female
  Weight: 54 kg

DRUGS (10)
  1. XARELTO [Suspect]
     Indication: CEREBROVASCULAR ACCIDENT PROPHYLAXIS
     Dosage: 15 MG, QD
     Route: 048
     Dates: start: 201309, end: 20131121
  2. XARELTO [Interacting]
     Indication: THROMBOSIS PROPHYLAXIS
     Dosage: 15 MG, QD
     Route: 048
     Dates: start: 20131204, end: 20131224
  3. BAYASPIRIN [Interacting]
     Dosage: 100 MG, UNK
     Route: 048
     Dates: end: 20131115
  4. BAYASPIRIN [Interacting]
     Dosage: DAILY DOSE 100 MG
     Route: 048
     Dates: start: 20131124, end: 20131224
  5. ARIXTRA [Suspect]
     Dosage: DAILY DOSE 2.5 MG
     Route: 058
     Dates: start: 20131124, end: 20131203
  6. AMLODIPINE BESILATE [Concomitant]
     Dosage: DAILY DOSE 5 MG
     Route: 048
     Dates: end: 20131224
  7. LANSOPRAZOLE [Concomitant]
     Dosage: DAILY DOSE 15 MG
     Route: 048
     Dates: end: 20131224
  8. CRESTOR [Concomitant]
     Dosage: DAILY DOSE 2.5 MG
     Route: 048
     Dates: end: 20131224
  9. MECOBALAMIN [Concomitant]
     Dosage: DAILY DOSE 1500 ?G
     Route: 048
     Dates: end: 20131224
  10. ADETPHOS [Concomitant]
     Dosage: DAILY DOSE .6 G
     Route: 048
     Dates: end: 20131224

REACTIONS (6)
  - Cerebellar haemorrhage [Fatal]
  - Dizziness [Fatal]
  - Headache [Fatal]
  - Vomiting [Fatal]
  - Depressed level of consciousness [Fatal]
  - Drug interaction [None]
